FAERS Safety Report 24824885 (Version 1)
Quarter: 2025Q1

REPORT INFORMATION
  Report Type: Spontaneous
  Country: US (occurrence: None)
  Receive Date: 20250106
  Receipt Date: 20250106
  Transmission Date: 20250409
  Serious: Yes (Disabling)
  Sender: FDA-CTU
  Company Number: None

PATIENT
  Age: 59 Year
  Sex: Female
  Weight: 53 kg

DRUGS (1)
  1. LENVIMA [Suspect]
     Active Substance: LENVATINIB
     Indication: Metastases to bone
     Dosage: FREQUENCY : DAILY;?
     Route: 048
     Dates: start: 20210212, end: 20210620

REACTIONS (8)
  - Muscle spasms [None]
  - Neuropathy peripheral [None]
  - Cerebrovascular accident [None]
  - Urinary incontinence [None]
  - Disease progression [None]
  - Therapy cessation [None]
  - Gait inability [None]
  - General physical health deterioration [None]

NARRATIVE: CASE EVENT DATE: 20210620
